FAERS Safety Report 6250282-9 (Version None)
Quarter: 2009Q2

REPORT INFORMATION
  Report Type: 
  Country: None (occurrence: None)
  Receive Date: 20090626
  Receipt Date: 20090626
  Transmission Date: 20091009
  Serious: Yes (Other)
  Sender: FDA-Public Use
  Company Number: None

PATIENT
  Sex: Female

DRUGS (1)
  1. TOPAMAX [Suspect]
     Dosage: TWICE 1/2 QD MOUTH
     Route: 048
     Dates: start: 20090401, end: 20090501

REACTIONS (2)
  - ALOPECIA [None]
  - PRODUCT SUBSTITUTION ISSUE [None]
